FAERS Safety Report 9476229 (Version 1)
Quarter: 2013Q3

REPORT INFORMATION
  Report Type: Spontaneous
  Country: US (occurrence: None)
  Receive Date: 20130823
  Receipt Date: 20130823
  Transmission Date: 20140515
  Serious: Yes (Hospitalization)
  Sender: FDA-Public Use
  Company Number: None

PATIENT
  Age: 72 Year
  Sex: Male
  Weight: 81.1 kg

DRUGS (1)
  1. LITHIUM [Suspect]
     Indication: BIPOLAR I DISORDER
     Dosage: 300MG AT BEDTIME PO
     Route: 048
     Dates: start: 20120425, end: 20120711

REACTIONS (8)
  - Balance disorder [None]
  - Asthenia [None]
  - Fall [None]
  - Confusional state [None]
  - Dehydration [None]
  - Azotaemia [None]
  - Antipsychotic drug level increased [None]
  - Toxicity to various agents [None]
